FAERS Safety Report 6704517-6 (Version None)
Quarter: 2010Q2

REPORT INFORMATION
  Report Type: 
  Country: None (occurrence: None)
  Receive Date: 20100430
  Receipt Date: 20100419
  Transmission Date: 20101027
  Serious: Yes (Hospitalization, Other)
  Sender: FDA-Public Use
  Company Number: US-ELI_LILLY_AND_COMPANY-US201003004729

PATIENT
  Sex: Female

DRUGS (5)
  1. FORTEO [Suspect]
     Indication: OSTEOPOROSIS
     Dosage: 20 UG, DAILY (1/D)
     Dates: end: 20091210
  2. COUMADIN [Concomitant]
     Dates: end: 20091201
  3. ZETIA [Concomitant]
     Dates: end: 20091201
  4. ASPIRIN [Concomitant]
     Dates: end: 20091201
  5. ANTIHYPERTENSIVE AGENT [Concomitant]
     Dates: end: 20091201

REACTIONS (11)
  - BACK PAIN [None]
  - CEREBROVASCULAR ACCIDENT [None]
  - COLON INJURY [None]
  - DIVERTICULUM INTESTINAL HAEMORRHAGIC [None]
  - FALL [None]
  - FLANK PAIN [None]
  - GAIT DISTURBANCE [None]
  - HAEMATOCHEZIA [None]
  - LOSS OF CONSCIOUSNESS [None]
  - MEMORY IMPAIRMENT [None]
  - MUSCULAR WEAKNESS [None]
